FAERS Safety Report 18165917 (Version 1)
Quarter: 2020Q3

REPORT INFORMATION
  Report Type: Spontaneous
  Country: US (occurrence: US)
  Receive Date: 20200818
  Receipt Date: 20200818
  Transmission Date: 20201103
  Serious: No
  Sender: FDA-Public Use
  Company Number: US-OTSUKA-2018_025086

PATIENT
  Sex: Female

DRUGS (5)
  1. ABILIFY [Suspect]
     Active Substance: ARIPIPRAZOLE
     Indication: POST-TRAUMATIC STRESS DISORDER
     Dosage: UNK, TID
     Route: 065
     Dates: start: 20100205, end: 20160930
  2. ABILIFY [Suspect]
     Active Substance: ARIPIPRAZOLE
     Indication: ATTENTION DEFICIT HYPERACTIVITY DISORDER
  3. ABILIFY [Suspect]
     Active Substance: ARIPIPRAZOLE
     Indication: EATING DISORDER
  4. ABILIFY [Suspect]
     Active Substance: ARIPIPRAZOLE
     Indication: ALCOHOL ABUSE
  5. ABILIFY [Suspect]
     Active Substance: ARIPIPRAZOLE
     Indication: PERSONALITY DISORDER

REACTIONS (33)
  - Injury [Unknown]
  - Feeling abnormal [Unknown]
  - Poor quality sleep [Not Recovered/Not Resolved]
  - Dermatillomania [Not Recovered/Not Resolved]
  - Trichotillomania [Not Recovered/Not Resolved]
  - Insomnia [Unknown]
  - Ear infection [Unknown]
  - Sleep apnoea syndrome [Unknown]
  - Shoplifting [Not Recovered/Not Resolved]
  - Musculoskeletal stiffness [Unknown]
  - Divorced [Unknown]
  - Delusion [Unknown]
  - Eating disorder [Not Recovered/Not Resolved]
  - Obsessive-compulsive disorder [Not Recovered/Not Resolved]
  - Gambling disorder [Recovered/Resolved]
  - Compulsive sexual behaviour [Not Recovered/Not Resolved]
  - Headache [Unknown]
  - Economic problem [Unknown]
  - Depressed mood [Unknown]
  - Homeless [Unknown]
  - Hallucination [Not Recovered/Not Resolved]
  - Pain in extremity [Unknown]
  - Temperature regulation disorder [Unknown]
  - Lethargy [Unknown]
  - Loss of employment [Unknown]
  - Irritability [Unknown]
  - Theft [Not Recovered/Not Resolved]
  - Bankruptcy [Unknown]
  - Product use in unapproved indication [Unknown]
  - Mental disorder [Unknown]
  - Arthralgia [Unknown]
  - Condition aggravated [Recovered/Resolved]
  - Inappropriate schedule of product administration [Unknown]

NARRATIVE: CASE EVENT DATE: 20100205
